FAERS Safety Report 15868514 (Version 1)
Quarter: 2019Q1

REPORT INFORMATION
  Report Type: Spontaneous
  Country: US (occurrence: US)
  Receive Date: 20190125
  Receipt Date: 20190125
  Transmission Date: 20190417
  Serious: No
  Sender: FDA-Public Use
  Company Number: US-NOVOPROD-583786

PATIENT
  Age: 2 Year
  Weight: 15.9 kg

DRUGS (1)
  1. NOVOSEVEN RT [Suspect]
     Active Substance: COAGULATION FACTOR VIIA RECOMBINANT HUMAN
     Indication: HAEMORRHAGIC DISORDER
     Dosage: 188MCG/KG EVERY 12 HOURS AS NEEDED
     Route: 042

REACTIONS (1)
  - Off label use [Unknown]
